FAERS Safety Report 9611582 (Version 2)
Quarter: 2014Q1

REPORT INFORMATION
  Report Type: Report from Study
  Country: DE (occurrence: DE)
  Receive Date: 20131010
  Receipt Date: 20140326
  Transmission Date: 20141002
  Serious: No
  Sender: FDA-Public Use
  Company Number: PHHY2013DE113161

PATIENT
  Sex: Male

DRUGS (11)
  1. AMN107 [Suspect]
     Indication: CHRONIC MYELOID LEUKAEMIA
     Dosage: 600 MG, PER DAY
     Dates: start: 20130712
  2. BISOPROLOL [Concomitant]
     Dates: start: 200805
  3. SIMVASTATIN [Concomitant]
     Dosage: 40 MG, UNK
     Dates: start: 2008
  4. LAMICTAL [Concomitant]
     Dosage: 100 MG, UNK
     Dates: start: 2008
  5. VIMPAT [Concomitant]
     Dosage: 400 MG, UNK
     Dates: start: 2008
  6. CLOPIDOGREL [Concomitant]
     Dosage: 75 MG, UNK
     Dates: start: 200808
  7. RANITIDIN [Concomitant]
     Dosage: 150 MG, UNK
     Dates: start: 2008
  8. PANTOZOL [Concomitant]
     Dosage: 40 MG, UNK
     Dates: start: 2008
  9. ZYPREXA [Concomitant]
     Dosage: 10 MG, UNK
     Dates: start: 2008
  10. ARICEPT [Concomitant]
     Dosage: 5 MG, UNK
     Dates: start: 2008
  11. IRON SULFATE [Concomitant]
     Dosage: 100 MG, UNK
     Dates: start: 20130920

REACTIONS (1)
  - Iron deficiency anaemia [Not Recovered/Not Resolved]
